FAERS Safety Report 8811036 (Version 1)
Quarter: 2012Q4

REPORT INFORMATION
  Report Type: Report from Study
  Country: US (occurrence: US)
  Receive Date: 20120927
  Receipt Date: 20120927
  Transmission Date: 20130627
  Serious: Yes (Other)
  Sender: FDA-Public Use
  Company Number: US-ABBOTT-12P-163-0981670-00

PATIENT
  Age: 71 Year
  Sex: Male

DRUGS (22)
  1. HUMIRA [Suspect]
     Indication: PSORIATIC ARTHROPATHY
     Dates: start: 200401
  2. NEXIUM [Concomitant]
     Indication: GASTROOESOPHAGEAL REFLUX DISEASE
     Route: 048
  3. ZINC [Concomitant]
     Indication: PROSTATIC DISORDER
     Dosage: 50 mg daily
     Route: 048
  4. JAYLIN [Concomitant]
     Indication: PROSTATOMEGALY
     Dosage: 0.5-0.4 mg daily
     Route: 048
  5. AMLODIPINE [Concomitant]
     Indication: CARDIAC DISORDER
     Dosage: 5 mg daily
     Route: 048
  6. CELEBREX [Concomitant]
     Indication: ARTHRITIS
     Dosage: 200 mg daily
     Route: 048
  7. LIPITOR [Concomitant]
     Indication: BLOOD CHOLESTEROL INCREASED
     Dosage: 20 mg daily
  8. PHENOFIBRATE [Concomitant]
     Indication: BLOOD TRIGLYCERIDES INCREASED
     Dosage: 54 mg daily
     Route: 048
  9. PAROXETINE [Concomitant]
     Indication: SEASONAL AFFECTIVE DISORDER
     Dosage: 25 mg daily
     Route: 048
  10. METOPROLOL [Concomitant]
     Indication: HYPERTENSION
     Dosage: 50 mg daily
     Route: 048
  11. NITROSTAT [Concomitant]
     Indication: ANGINA PECTORIS
     Route: 060
  12. FOLIC ACID [Concomitant]
     Indication: CARDIAC DISORDER
     Dosage: 1 mg daily
     Route: 048
  13. METFORMIN [Concomitant]
     Indication: DIABETES MELLITUS
     Dosage: 1000 mg daily
     Route: 048
  14. NASONEX [Concomitant]
     Indication: HYPERSENSITIVITY
     Dosage: 2 puffs each nostril daily
  15. GELNIQUE [Concomitant]
     Indication: HYPERTONIC BLADDER
     Dosage: 10 mg daily
     Route: 061
  16. ASA [Concomitant]
     Indication: CARDIAC DISORDER
     Dosage: 81 mg daily
     Route: 048
  17. VITAMIN C [Concomitant]
     Indication: CARDIAC DISORDER
     Route: 048
  18. VITAMIN B 100 [Concomitant]
     Indication: CARDIAC DISORDER
     Dosage: 1 daily
     Route: 048
  19. COENZYME Q10 [Concomitant]
     Indication: CARDIAC DISORDER
     Dosage: 100 mg daily
     Route: 048
  20. ABC PLUS SENIOR MULTIVITAMIN [Concomitant]
     Indication: ROUTINE HEALTH MAINTENANCE
     Dosage: Daily
     Route: 048
  21. OMEGA 3 FISH OIL [Concomitant]
     Indication: CARDIAC DISORDER
     Route: 048
  22. HUMULIN N [Concomitant]
     Indication: DIABETES MELLITUS
     Dosage: 16 units Sub-Q in AM and 14 units Sub-Q at bedtime

REACTIONS (4)
  - Morton^s neuroma [Recovered/Resolved]
  - Injection site pain [Not Recovered/Not Resolved]
  - Intervertebral disc protrusion [Recovered/Resolved]
  - Intervertebral disc protrusion [Recovered/Resolved]
